FAERS Safety Report 5510399-0 (Version None)
Quarter: 2007Q4

REPORT INFORMATION
  Report Type: 
  Country: None (occurrence: None)
  Receive Date: 20071108
  Receipt Date: 20071105
  Transmission Date: 20080405
  Serious: Yes (Hospitalization)
  Sender: FDA-Public Use
  Company Number: DE-BRISTOL-MYERS SQUIBB COMPANY-13925037

PATIENT
  Age: 78 Year
  Sex: Female

DRUGS (7)
  1. IRBESARTAN [Suspect]
     Indication: HYPERTENSION
     Route: 048
     Dates: start: 20030801
  2. IRBESARTAN [Suspect]
     Indication: LAXATIVE SUPPORTIVE CARE
     Route: 048
     Dates: start: 20030801
  3. LEVOTHYROXINE SODIUM [Concomitant]
     Indication: HYPOTHYROIDISM
     Route: 048
     Dates: start: 20030101
  4. ASPIRIN [Concomitant]
     Route: 048
  5. PLAVIX [Concomitant]
     Indication: CEREBROVASCULAR ACCIDENT
     Route: 048
     Dates: start: 20030101
  6. TORSEMIDE [Concomitant]
     Indication: OEDEMA
     Route: 048
     Dates: start: 20030101
  7. METOPROLOL TARTRATE [Concomitant]

REACTIONS (3)
  - ACRODERMATITIS ENTEROPATHICA [None]
  - LIP OEDEMA [None]
  - ZINC DEFICIENCY [None]
